FAERS Safety Report 14755666 (Version 1)
Quarter: 2018Q2

REPORT INFORMATION
  Report Type: Spontaneous
  Country: US (occurrence: US)
  Receive Date: 20180413
  Receipt Date: 20180413
  Transmission Date: 20180711
  Serious: No
  Sender: FDA-Public Use
  Company Number: US-BAYER-2018-064727

PATIENT
  Age: 89 Year
  Sex: Female
  Weight: 72.97 kg

DRUGS (15)
  1. WARFARIN [Concomitant]
     Active Substance: WARFARIN
  2. DENOSUMAB [Concomitant]
     Active Substance: DENOSUMAB
  3. FUROSEMIDE. [Concomitant]
     Active Substance: FUROSEMIDE
  4. CENTRUM SILVER [Concomitant]
     Active Substance: MINERALS\VITAMINS
  5. CALTRATE [Concomitant]
     Active Substance: CALCIUM CARBONATE
  6. CILOSTAZOL. [Concomitant]
     Active Substance: CILOSTAZOL
  7. LOVAZA [Concomitant]
     Active Substance: OMEGA-3-ACID ETHYL ESTERS
     Dosage: UNK
  8. OSTEO BI-FLEX [Concomitant]
     Active Substance: CHONDROITIN SULFATE A\GLUCOSAMINE
  9. TYLENOL [Concomitant]
     Active Substance: ACETAMINOPHEN
  10. ARICEPT [Concomitant]
     Active Substance: DONEPEZIL HYDROCHLORIDE
  11. CLARITIN [Suspect]
     Active Substance: LORATADINE
     Indication: RHINORRHOEA
     Dosage: 1 DF, UNK
     Route: 048
     Dates: start: 20180401, end: 20180401
  12. VITAMIN C [Concomitant]
     Active Substance: ASCORBIC ACID
  13. METOPROLOL. [Concomitant]
     Active Substance: METOPROLOL
  14. VITAMIN D [Concomitant]
     Active Substance: CHOLECALCIFEROL
  15. LIPITOR [Concomitant]
     Active Substance: ATORVASTATIN CALCIUM

REACTIONS (1)
  - Drug ineffective [Not Recovered/Not Resolved]
